FAERS Safety Report 7000009-8 (Version None)
Quarter: 2010Q3

REPORT INFORMATION
  Report Type: 
  Country: None (occurrence: None)
  Receive Date: 20100920
  Receipt Date: 20100701
  Transmission Date: 20110219
  Serious: No
  Sender: FDA-Public Use
  Company Number: US-ASTRAZENECA-2007UW25107

PATIENT
  Age: 45 Year
  Sex: Female

DRUGS (12)
  1. SEROQUEL [Suspect]
     Indication: DEPRESSION
     Dosage: 100-300 MG
     Route: 048
     Dates: start: 20050101, end: 20080601
  2. SEROQUEL [Suspect]
     Indication: BIPOLAR DISORDER
     Dosage: 100-300 MG
     Route: 048
     Dates: start: 20050101, end: 20080601
  3. SEROQUEL [Suspect]
     Route: 048
     Dates: start: 20060324
  4. SEROQUEL [Suspect]
     Route: 048
     Dates: start: 20060324
  5. AMBIEN [Concomitant]
     Route: 065
  6. DEPAKOTE [Concomitant]
     Dosage: 250 MG, 500 MG II DAILY
     Route: 065
  7. CYMBALTA [Concomitant]
     Dosage: 30- 60 MG
     Route: 065
  8. RISPERDAL [Concomitant]
     Indication: BIPOLAR DISORDER
     Dosage: 1MG TO 300 MG
     Route: 065
     Dates: start: 20050101, end: 20060101
  9. RISPERDAL [Concomitant]
     Indication: DEPRESSION
     Dosage: 1MG TO 300 MG
     Route: 065
     Dates: start: 20050101, end: 20060101
  10. MENTAX [Concomitant]
     Route: 065
  11. JANUVIA [Concomitant]
     Route: 065
  12. JANUMET [Concomitant]
     Route: 065

REACTIONS (8)
  - BLOOD CHOLESTEROL INCREASED [None]
  - CARPAL TUNNEL SYNDROME [None]
  - DIABETIC COMPLICATION [None]
  - HYPERLIPIDAEMIA [None]
  - SCIATICA [None]
  - TYPE 2 DIABETES MELLITUS [None]
  - URINARY TRACT INFECTION [None]
  - WEIGHT INCREASED [None]
